FAERS Safety Report 21885179 (Version 1)
Quarter: 2023Q1

REPORT INFORMATION
  Report Type: Report from Study
  Country: US (occurrence: US)
  Receive Date: 20230119
  Receipt Date: 20230119
  Transmission Date: 20230418
  Serious: Yes (Other)
  Sender: FDA-Public Use
  Company Number: US-UCBSA-2023002345

PATIENT
  Sex: Female

DRUGS (1)
  1. CERTOLIZUMAB PEGOL [Suspect]
     Active Substance: CERTOLIZUMAB PEGOL
     Indication: Rheumatoid arthritis
     Dosage: 400 MILLIGRAM, EV 4 WEEKS

REACTIONS (6)
  - Arthritis [Unknown]
  - Artificial crown procedure [Unknown]
  - Tooth infection [Unknown]
  - Tooth extraction [Unknown]
  - Insurance issue [Unknown]
  - Therapy interrupted [Unknown]
